FAERS Safety Report 6714635-4 (Version None)
Quarter: 2010Q2

REPORT INFORMATION
  Report Type: 
  Country: None (occurrence: None)
  Receive Date: 20100507
  Receipt Date: 20100427
  Transmission Date: 20101027
  Serious: No
  Sender: FDA-Public Use
  Company Number: 2008BI025280

PATIENT
  Sex: Female

DRUGS (2)
  1. TYSABRI [Suspect]
     Indication: MULTIPLE SCLEROSIS
     Route: 042
     Dates: start: 20080822, end: 20090311
  2. TYSABRI [Suspect]
     Route: 042
     Dates: start: 20090729, end: 20100408

REACTIONS (5)
  - DEHYDRATION [None]
  - HEADACHE [None]
  - PRURITUS [None]
  - RASH [None]
  - URTICARIA [None]
